FAERS Safety Report 21661805 (Version 2)
Quarter: 2022Q4

REPORT INFORMATION
  Report Type: Other
  Country: TW (occurrence: None)
  Receive Date: 20221130
  Receipt Date: 20221212
  Transmission Date: 20230112
  Serious: Yes (Death, Hospitalization)
  Sender: FDA-Public Use
  Company Number: TW-MLMSERVICE-20221118-3930174-1

PATIENT
  Age: 42 Year
  Sex: Male

DRUGS (7)
  1. MYCOPHENOLATE MOFETIL [Suspect]
     Active Substance: MYCOPHENOLATE MOFETIL
     Indication: Vanishing bile duct syndrome
     Route: 048
  2. PREDNISOLONE [Suspect]
     Active Substance: PREDNISOLONE
     Indication: Vanishing bile duct syndrome
     Route: 065
  3. HYDROCORTISONE [Suspect]
     Active Substance: HYDROCORTISONE
     Indication: Vanishing bile duct syndrome
     Route: 065
  4. METHYLPREDNISOLONE [Suspect]
     Active Substance: METHYLPREDNISOLONE
     Indication: Stevens-Johnson syndrome
     Dosage: DOSE EQUIVALENT TO 1.2-2.6 MG/KG OF PREDNISONE PER DAY
     Route: 065
  5. ACETAMINOPHEN [Concomitant]
     Active Substance: ACETAMINOPHEN
     Indication: Muscular weakness
  6. FAMOTIDINE [Concomitant]
     Active Substance: FAMOTIDINE
     Indication: Muscular weakness
  7. ACETAMINOPHEN [Concomitant]
     Active Substance: ACETAMINOPHEN
     Indication: Muscular weakness

REACTIONS (7)
  - Septic shock [Fatal]
  - Hypovolaemic shock [Fatal]
  - Cytomegalovirus infection [Unknown]
  - General physical health deterioration [Unknown]
  - Colitis [Fatal]
  - Impaired healing [Fatal]
  - Haemorrhage [Fatal]
